FAERS Safety Report 19203650 (Version 1)
Quarter: 2021Q2

REPORT INFORMATION
  Report Type: Spontaneous
  Country: JP (occurrence: JP)
  Receive Date: 20210430
  Receipt Date: 20210430
  Transmission Date: 20210717
  Serious: Yes (Death, Other)
  Sender: FDA-Public Use
  Company Number: JP-BRISTOL-MYERS SQUIBB COMPANY-BMS-2019-126938

PATIENT
  Age: 75 Year
  Sex: Female
  Weight: 48.4 kg

DRUGS (3)
  1. OPDIVO [Suspect]
     Active Substance: NIVOLUMAB
     Dosage: 80 MILLIGRAM,FOUR TIMES
     Route: 041
     Dates: start: 20181226, end: 20190227
  2. YERVOY [Suspect]
     Active Substance: IPILIMUMAB
     Indication: MALIGNANT MELANOMA
     Dosage: 175.95 MILLIGRAM,FOUR TIMES
     Route: 041
     Dates: start: 20181226, end: 20190227
  3. OPDIVO [Suspect]
     Active Substance: NIVOLUMAB
     Indication: MALIGNANT MELANOMA
     Dosage: UNK
     Route: 041
     Dates: start: 20180807

REACTIONS (1)
  - Death [Fatal]

NARRATIVE: CASE EVENT DATE: 20191201
